FAERS Safety Report 4727398-9 (Version None)
Quarter: 2005Q3

REPORT INFORMATION
  Report Type: 
  Country: None (occurrence: None)
  Receive Date: 20050727
  Receipt Date: 20050727
  Transmission Date: 20060218
  Serious: Yes (Hospitalization)
  Sender: FDA-Public Use
  Company Number: None

PATIENT
  Age: 49 Year
  Sex: Male
  Weight: 127.0072 kg

DRUGS (3)
  1. WARFARIN [Suspect]
     Indication: ANTICOAGULANT THERAPY
     Dosage: 10 MG 6 X WK AND 11 MG 1 X WK [CHRONIC]
  2. METOPROLOL [Concomitant]
  3. LISINOPRIL [Concomitant]

REACTIONS (7)
  - DIZZINESS [None]
  - FALL [None]
  - HAEMARTHROSIS [None]
  - HAEMATOMA [None]
  - HAEMORRHAGE [None]
  - INTERNATIONAL NORMALISED RATIO INCREASED [None]
  - PAIN [None]
